FAERS Safety Report 26167410 (Version 1)
Quarter: 2025Q4

REPORT INFORMATION
  Report Type: Spontaneous
  Country: US (occurrence: None)
  Receive Date: 20251217
  Receipt Date: 20251217
  Transmission Date: 20260118
  Serious: Yes (Hospitalization, Other)
  Sender: APOTEX
  Company Number: US-APOTEX-2025AP034052

PATIENT
  Age: 43 Year
  Sex: Male

DRUGS (1)
  1. SIROLIMUS [Suspect]
     Active Substance: SIROLIMUS
     Indication: Product used for unknown indication
     Dosage: UNK
     Route: 065

REACTIONS (15)
  - Abnormal loss of weight [Unknown]
  - Fatigue [Unknown]
  - Chronic kidney disease [Unknown]
  - Disease progression [Unknown]
  - Glomerulosclerosis [Unknown]
  - Kidney fibrosis [Unknown]
  - Renal tubular injury [Unknown]
  - Renal tubular atrophy [Unknown]
  - Renal impairment [Unknown]
  - Haematuria [Unknown]
  - Inflammation [Unknown]
  - Toxicity to various agents [Unknown]
  - Pyuria [Unknown]
  - Proteinuria [Unknown]
  - BK virus infection [Unknown]
